FAERS Safety Report 9012713 (Version 1)
Quarter: 2013Q1

REPORT INFORMATION
  Report Type: Spontaneous
  Country: FR (occurrence: FR)
  Receive Date: 20130114
  Receipt Date: 20130114
  Transmission Date: 20140127
  Serious: Yes (Hospitalization)
  Sender: FDA-Public Use
  Company Number: FR-GILEAD-2013-0067770

PATIENT
  Age: 55 Year
  Sex: Male

DRUGS (9)
  1. TRUVADA [Suspect]
     Indication: HIV INFECTION
     Dosage: 1 DF, QD
     Route: 048
     Dates: start: 20090113
  2. PREZISTA [Suspect]
     Indication: HIV INFECTION
     Dosage: 1200 MG, UNK
     Route: 048
     Dates: start: 20090113
  3. ISENTRESS [Suspect]
     Indication: HIV INFECTION
     Dosage: 2 DF, QD
     Route: 048
     Dates: start: 20090113
  4. NORVIR [Suspect]
     Dosage: 1200 MG, QD
     Route: 048
     Dates: start: 20090113
  5. FRACTAL [Concomitant]
     Dosage: UNK
     Dates: start: 200703
  6. VALDOXAN [Concomitant]
  7. LEXOMIL [Concomitant]
  8. STILNOX [Concomitant]
  9. ATHYMIL [Concomitant]
     Dosage: UNK

REACTIONS (1)
  - Deafness [Not Recovered/Not Resolved]
